FAERS Safety Report 5608964-5 (Version None)
Quarter: 2008Q1

REPORT INFORMATION
  Report Type: 
  Country: None (occurrence: None)
  Receive Date: 20080131
  Receipt Date: 20080103
  Transmission Date: 20080703
  Serious: Yes (Other)
  Sender: FDA-Public Use
  Company Number: US-JNJFOC-20080107464

PATIENT
  Age: 67 Year
  Sex: Female

DRUGS (9)
  1. DURAGESIC-100 [Suspect]
     Indication: PAIN IN EXTREMITY
     Route: 062
  2. PROCRIT [Concomitant]
     Indication: ANAEMIA
     Route: 065
  3. PROCRIT [Concomitant]
     Indication: RENAL FAILURE CHRONIC
     Dosage: 18K UNITS WEEKLY
     Route: 065
  4. ZAROXOLYN [Concomitant]
     Route: 065
  5. HUMULIN R [Concomitant]
     Route: 065
  6. ASPIRIN [Concomitant]
     Route: 065
  7. LANOXIN [Concomitant]
     Route: 065
  8. CARDIZEM CD [Concomitant]
     Route: 065
  9. CLONIDINE [Concomitant]
     Route: 065

REACTIONS (1)
  - PANNICULITIS [None]
